FAERS Safety Report 15494110 (Version 3)
Quarter: 2019Q1

REPORT INFORMATION
  Report Type: Spontaneous
  Country: US (occurrence: US)
  Receive Date: 20181012
  Receipt Date: 20190227
  Transmission Date: 20190417
  Serious: Yes (Disabling, Other)
  Sender: FDA-Public Use
  Company Number: US-PFIZER INC-2018403247

PATIENT
  Age: 59 Year
  Sex: Female
  Weight: 100 kg

DRUGS (7)
  1. LYRICA [Suspect]
     Active Substance: PREGABALIN
     Indication: NECK PAIN
  2. PERCOCET [Concomitant]
     Active Substance: ACETAMINOPHEN\OXYCODONE HYDROCHLORIDE
     Indication: PAIN
     Dosage: UNK, AS NEEDED [OXYCODONE HYDROCHLORIDE-10MG, PARACETAMOL-325MG] (1 EVERY 6 HOURS)
  3. LYRICA [Suspect]
     Active Substance: PREGABALIN
     Indication: PAIN IN EXTREMITY
     Dosage: 150 MG, DAILY(ONE CAPSULE IN THE MORNING AND TWO CAPSULES AT NIGHT)
     Route: 048
  4. VALIUM [Concomitant]
     Active Substance: DIAZEPAM
     Indication: MUSCLE SPASMS
     Dosage: UNK, AS NEEDED (1/2-2 TABLETS UP TO TWO TIMES A DAY AS NEEDED)
  5. LYRICA [Suspect]
     Active Substance: PREGABALIN
     Indication: PAIN
     Dosage: 150 MG, DAILY (SOMETIMES TAKES 75MG IN THE MORNING AND 75MG AT NIGHT)
     Dates: start: 2018
  6. CHLORZOXAZONE. [Concomitant]
     Active Substance: CHLORZOXAZONE
     Indication: MUSCLE SPASMS
     Dosage: 500 MG, 3X/DAY
  7. VALIUM [Concomitant]
     Active Substance: DIAZEPAM
     Indication: TENSION

REACTIONS (7)
  - Neck pain [Unknown]
  - Headache [Unknown]
  - Weight increased [Unknown]
  - Choking [Unknown]
  - Neuralgia [Unknown]
  - Cough [Unknown]
  - Gait disturbance [Unknown]
